FAERS Safety Report 6759886-8 (Version None)
Quarter: 2010Q2

REPORT INFORMATION
  Report Type: 
  Country: None (occurrence: None)
  Receive Date: 20100604
  Receipt Date: 20100521
  Transmission Date: 20101027
  Serious: Yes (Hospitalization)
  Sender: FDA-Public Use
  Company Number: 230546J10USA

PATIENT
  Age: 54 Year
  Sex: Female

DRUGS (10)
  1. REBIF [Suspect]
     Indication: MULTIPLE SCLEROSIS
     Dosage: 44 MCG, 3 IN 1 WK, SUBCUTANEOUS
     Route: 058
     Dates: start: 20080115
  2. INSULIN (INSULIN) [Concomitant]
  3. SULFASALAZINE [Concomitant]
  4. LOVAZA [Concomitant]
  5. ARANSEP (DARBEPOETIN ALFA) [Concomitant]
  6. SYNTHROID [Concomitant]
  7. METOCLOPRAMIDE (METOCLOPRAMIDE) [Concomitant]
  8. SIMVASTATIN [Concomitant]
  9. FUROSEMIDE [Concomitant]
  10. ALLOPURINOL [Concomitant]

REACTIONS (2)
  - DEHYDRATION [None]
  - PANCREATITIS [None]
